FAERS Safety Report 12308711 (Version 1)
Quarter: 2016Q2

REPORT INFORMATION
  Report Type: Spontaneous
  Country: US (occurrence: US)
  Receive Date: 20160427
  Receipt Date: 20160427
  Transmission Date: 20160815
  Serious: No
  Sender: FDA-Public Use
  Company Number: US-BIOGEN-2016BI00220795

PATIENT
  Sex: Female

DRUGS (1)
  1. TYSABRI [Suspect]
     Active Substance: NATALIZUMAB
     Indication: MULTIPLE SCLEROSIS
     Route: 065

REACTIONS (4)
  - Yellow skin [Not Recovered/Not Resolved]
  - Nail discolouration [Not Recovered/Not Resolved]
  - Ocular icterus [Not Recovered/Not Resolved]
  - White blood cells urine positive [Unknown]
